FAERS Safety Report 14670740 (Version 3)
Quarter: 2018Q2

REPORT INFORMATION
  Report Type: Not Available
  Country: US (occurrence: US)
  Receive Date: 20180322
  Receipt Date: 20180515
  Transmission Date: 20180711
  Serious: Yes (Hospitalization)
  Sender: FDA-Public Use
  Company Number: US-NEUROCRINE BIOSCIENCES INC.-2018NBI00761

PATIENT
  Sex: Male

DRUGS (13)
  1. INGREZZA [Suspect]
     Active Substance: VALBENAZINE
     Route: 048
     Dates: start: 20180221, end: 20180411
  2. TRAZODONE HYDROCHLORIDE. [Concomitant]
     Active Substance: TRAZODONE HYDROCHLORIDE
  3. METOPROLOL SUCCINATE ER [Concomitant]
     Active Substance: METOPROLOL SUCCINATE
  4. COGENTIN [Concomitant]
     Active Substance: BENZTROPINE MESYLATE
  5. CLOZAPINE. [Concomitant]
     Active Substance: CLOZAPINE
  6. TYLENOL EXTRA STRENGTH [Concomitant]
     Active Substance: ACETAMINOPHEN
  7. INGREZZA [Suspect]
     Active Substance: VALBENAZINE
     Indication: PRODUCT USED FOR UNKNOWN INDICATION
     Route: 048
     Dates: start: 20180213, end: 20180220
  8. CARFENTANIL [Concomitant]
     Active Substance: CARFENTANIL
  9. FERROUS SULFATE. [Concomitant]
     Active Substance: FERROUS SULFATE
  10. KLONOPIN [Concomitant]
     Active Substance: CLONAZEPAM
  11. DEPAKOTE ER [Concomitant]
     Active Substance: DIVALPROEX SODIUM
  12. LACTULOSE. [Concomitant]
     Active Substance: LACTULOSE
  13. FISH OIL CONCENTRATE [Concomitant]
     Active Substance: FISH OIL

REACTIONS (3)
  - Influenza [Unknown]
  - Malaise [Unknown]
  - Mania [Unknown]

NARRATIVE: CASE EVENT DATE: 2018
